FAERS Safety Report 11841307 (Version 2)
Quarter: 2016Q1

REPORT INFORMATION
  Report Type: Report from Study
  Country: DE (occurrence: AT)
  Receive Date: 20151216
  Receipt Date: 20160119
  Transmission Date: 20160526
  Serious: Yes (Hospitalization)
  Sender: FDA-Public Use
  Company Number: DE-PFIZER INC-2015432454

PATIENT
  Age: 63 Year
  Sex: Male
  Weight: 79 kg

DRUGS (10)
  1. PARACETAMOL [Concomitant]
     Active Substance: ACETAMINOPHEN
     Dosage: 1000 MG, DAILY
     Dates: start: 20141218, end: 20141218
  2. RITUXIMAB [Concomitant]
     Active Substance: RITUXIMAB
     Dosage: 724 MG, DAILY
     Dates: start: 20141218, end: 20141218
  3. DEXAMETHASONE. [Concomitant]
     Active Substance: DEXAMETHASONE
     Dosage: 40 MG, DAILY
     Dates: start: 20141212, end: 20141222
  4. CISPLATINE [Concomitant]
     Active Substance: CISPLATIN
     Dosage: 193 MG, DAILY
     Dates: start: 20141219, end: 20141219
  5. COTRIM D.S. [Concomitant]
     Active Substance: SULFAMETHOXAZOLE\TRIMETHOPRIM
     Dosage: 960 MG, 3X/WEEK
     Dates: start: 20141219
  6. PANTOZOL [Concomitant]
     Active Substance: PANTOPRAZOLE SODIUM
     Dosage: 40 MG, DAILY
     Dates: start: 20141218
  7. ALLOPURINOL. [Concomitant]
     Active Substance: ALLOPURINOL
     Dosage: 300 MG, DAILY
     Dates: start: 20141218, end: 20141218
  8. MCP [Concomitant]
     Active Substance: METOCLOPRAMIDE HYDROCHLORIDE
     Dosage: 40 MG, DAILY
     Dates: start: 20141219, end: 20141221
  9. TEMSIROLIMUS [Suspect]
     Active Substance: TEMSIROLIMUS
     Dosage: 25 MG, CYCLIC (ON DAY 1 AND 8)
     Dates: start: 20141217, end: 20141223
  10. CYTARABINE. [Concomitant]
     Active Substance: CYTARABINE
     Dosage: 8000 MG, DAILY
     Dates: start: 20141220, end: 20141220

REACTIONS (2)
  - Acute kidney injury [Recovered/Resolved]
  - Febrile neutropenia [Recovered/Resolved]

NARRATIVE: CASE EVENT DATE: 20141224
